FAERS Safety Report 15734782 (Version 1)
Quarter: 2018Q4

REPORT INFORMATION
  Report Type: Spontaneous
  Country: US (occurrence: US)
  Receive Date: 20181203
  Receipt Date: 20181203
  Transmission Date: 20190205
  Serious: No
  Sender: FDA-Public Use
  Company Number: None

PATIENT
  Age: 46 Year
  Sex: Female
  Weight: 73.48 kg

DRUGS (1)
  1. LEVOTHYROXINE SODIUM 25MCG [Suspect]
     Active Substance: LEVOTHYROXINE SODIUM
     Indication: HYPOTHYROIDISM
     Dosage: ?          OTHER DOSE:1 TABLET;?
     Route: 048
     Dates: start: 20181002, end: 20181010

REACTIONS (3)
  - Pharyngeal oedema [None]
  - Insomnia [None]
  - Feeding disorder [None]

NARRATIVE: CASE EVENT DATE: 20181022
